FAERS Safety Report 25872837 (Version 1)
Quarter: 2025Q4

REPORT INFORMATION
  Report Type: Spontaneous
  Country: US (occurrence: US)
  Receive Date: 20251002
  Receipt Date: 20251002
  Transmission Date: 20260118
  Serious: No
  Sender: REVANCE THERAPEUTICS
  Company Number: US-REVANCE THERAPEUTICS INC.-US-REV-2025-000456

PATIENT

DRUGS (1)
  1. DAXIBOTULINUMTOXIN A-LANM [Suspect]
     Active Substance: DAXIBOTULINUMTOXIN A-LANM
     Indication: Skin wrinkling
     Dosage: UNK GLABELLA (40 UNITS), FRONTALIS (30 UNITS), AND LATERAL CANTHAL LINE (30 PER SIDE)
     Route: 065
     Dates: start: 20250702

REACTIONS (4)
  - Therapeutic product effect decreased [Unknown]
  - Drug ineffective for unapproved indication [Unknown]
  - Product preparation error [Unknown]
  - Off label use [Unknown]

NARRATIVE: CASE EVENT DATE: 20250701
